FAERS Safety Report 6809804-9 (Version None)
Quarter: 2010Q2

REPORT INFORMATION
  Report Type: 
  Country: None (occurrence: None)
  Receive Date: 20100630
  Receipt Date: 20100622
  Transmission Date: 20101027
  Serious: Yes (Hospitalization, Disabling, Other)
  Sender: FDA-Public Use
  Company Number: US-BAYER-201014433NA

PATIENT
  Age: 9 Year
  Sex: Male

DRUGS (1)
  1. CIPRO [Suspect]
     Indication: URINARY TRACT INFECTION
     Dosage: 2 DOSES - 15-FEB-2010 AT 9:00 PM AND 16-FEB-2010 AT 9:00 AM
     Dates: start: 20100215, end: 20100216

REACTIONS (15)
  - ABASIA [None]
  - ABNORMAL BEHAVIOUR [None]
  - ASTHENIA [None]
  - DIPLOPIA [None]
  - DIZZINESS [None]
  - DYSKINESIA [None]
  - EYE MOVEMENT DISORDER [None]
  - EYELID PTOSIS [None]
  - MYOCLONUS [None]
  - PRURITUS [None]
  - RASH [None]
  - TREMOR [None]
  - URTICARIA [None]
  - VISION BLURRED [None]
  - VISUAL IMPAIRMENT [None]
